FAERS Safety Report 7029185-8 (Version None)
Quarter: 2010Q3

REPORT INFORMATION
  Report Type: 
  Country: None (occurrence: None)
  Receive Date: 20100930
  Receipt Date: 20100914
  Transmission Date: 20110219
  Serious: Yes (Life-Threatening)
  Sender: FDA-Public Use
  Company Number: ACO_02214_2010

PATIENT
  Sex: Female
  Weight: 155 kg

DRUGS (1)
  1. AMPYRA [Suspect]
     Indication: ENERGY INCREASED
     Dosage: (DF ORAL)
     Route: 048
     Dates: start: 20100101, end: 20100101

REACTIONS (1)
  - SUICIDAL IDEATION [None]
